FAERS Safety Report 9818156 (Version 3)
Quarter: 2015Q1

REPORT INFORMATION
  Report Type: Report from Study
  Country: TH (occurrence: TH)
  Receive Date: 20140115
  Receipt Date: 20150107
  Transmission Date: 20150721
  Serious: Yes (Hospitalization)
  Sender: FDA-Public Use
  Company Number: TH-ROCHE-1257908

PATIENT
  Age: 30 Year
  Sex: Male
  Weight: 78.2 kg

DRUGS (18)
  1. CHLORPHENIRAMINE [Concomitant]
     Active Substance: CHLORPHENIRAMINE
     Indication: RASH PAPULAR
     Route: 065
     Dates: start: 20130726, end: 20130726
  2. CYCLOPHOSPHAMIDE. [Suspect]
     Active Substance: CYCLOPHOSPHAMIDE
     Indication: DIFFUSE LARGE B-CELL LYMPHOMA
     Dosage: MOST RECENT DOSE RECEIVED ON 26/JUL/2013 AT A DOSE OF 1500 MG
     Route: 042
     Dates: start: 20130726
  3. ALLOPURINOL. [Concomitant]
     Active Substance: ALLOPURINOL
     Indication: PROPHYLAXIS
  4. DEXAMETHASONE. [Concomitant]
     Active Substance: DEXAMETHASONE
     Indication: PREMEDICATION
     Dosage: INDICATION: PREMEDICATION
     Route: 065
     Dates: start: 20130726, end: 20131227
  5. ATIVAN [Concomitant]
     Active Substance: LORAZEPAM
     Indication: PROPHYLAXIS
     Route: 065
     Dates: start: 20130725, end: 20130731
  6. DOXORUBICIN [Suspect]
     Active Substance: DOXORUBICIN
     Indication: DIFFUSE LARGE B-CELL LYMPHOMA
     Dosage: MOST RECENT DOSE RECEIVED ON 26/JUL/2013 AT A DOSE OF 100 MG
     Route: 042
     Dates: start: 20130726
  7. PREDNISONE. [Suspect]
     Active Substance: PREDNISONE
     Indication: DIFFUSE LARGE B-CELL LYMPHOMA
     Dosage: MOST RECENT DOSE RECEIVED ON 26/JUL/2013 AT A DOSE OF 100 MG
     Route: 048
     Dates: start: 20130726
  8. MOTILIUM [Concomitant]
     Active Substance: DOMPERIDONE
     Indication: PROPHYLAXIS OF NAUSEA AND VOMITING
     Route: 065
     Dates: start: 20130726, end: 20131009
  9. PARACETAMOL [Concomitant]
     Active Substance: ACETAMINOPHEN
     Indication: PREMEDICATION
     Route: 065
     Dates: start: 20130726, end: 20131227
  10. BENADRYL (THAILAND) [Concomitant]
     Indication: PREMEDICATION
     Route: 065
     Dates: start: 20130726, end: 20131227
  11. VINCRISTINE [Suspect]
     Active Substance: VINCRISTINE
     Indication: DIFFUSE LARGE B-CELL LYMPHOMA
     Dosage: MOST RECENT DOSE RECEIVED ON 26/JUL/2013 AT A DOSE OF 2 MG
     Route: 040
     Dates: start: 20130726
  12. ALLOPURINOL. [Concomitant]
     Active Substance: ALLOPURINOL
     Indication: TUMOUR LYSIS SYNDROME
     Route: 065
     Dates: start: 20130725, end: 20130731
  13. MOTILIUM [Concomitant]
     Active Substance: DOMPERIDONE
     Indication: PROPHYLAXIS OF NAUSEA AND VOMITING
  14. OMEPRAZOLE. [Concomitant]
     Active Substance: OMEPRAZOLE
     Indication: PROPHYLAXIS AGAINST GASTROINTESTINAL ULCER
     Route: 065
     Dates: start: 20130726, end: 20131009
  15. OBINUTUZUMAB [Suspect]
     Active Substance: OBINUTUZUMAB
     Indication: DIFFUSE LARGE B-CELL LYMPHOMA
     Dosage: MOST RECENT DOSE RECEIVED ON 02/AUG/2013 AT A VOLUME OF 1000 ML AND DOSE CONCENTRATION OF 250 MG/ML
     Route: 042
     Dates: start: 20130726
  16. BACLOFEN. [Concomitant]
     Active Substance: BACLOFEN
     Indication: HICCUPS
     Route: 065
     Dates: start: 20130727, end: 20130802
  17. ONDANSETRON [Concomitant]
     Active Substance: ONDANSETRON
     Indication: PREMEDICATION
     Route: 065
     Dates: start: 20130726, end: 20131227
  18. DEXAMETHASONE. [Concomitant]
     Active Substance: DEXAMETHASONE
     Indication: CHILLS
     Dosage: INDICATION: CHILLS
     Route: 065
     Dates: start: 20130726, end: 20130726

REACTIONS (1)
  - Neutropenia [Recovered/Resolved]

NARRATIVE: CASE EVENT DATE: 20130803
